FAERS Safety Report 16754022 (Version 1)
Quarter: 2019Q3

REPORT INFORMATION
  Report Type: Spontaneous
  Country: FR (occurrence: FR)
  Receive Date: 20190829
  Receipt Date: 20190829
  Transmission Date: 20191005
  Serious: Yes (Hospitalization, Other)
  Sender: FDA-Public Use
  Company Number: FR-PFIZER INC-2019367157

PATIENT
  Sex: Male

DRUGS (14)
  1. PACLITAXEL. [Suspect]
     Active Substance: PACLITAXEL
  2. NEFOPAM [Concomitant]
     Active Substance: NEFOPAM
  3. BISOPROLOL [Concomitant]
     Active Substance: BISOPROLOL
  4. METHOTREXATE. [Concomitant]
     Active Substance: METHOTREXATE
  5. LACTULOSE. [Concomitant]
     Active Substance: LACTULOSE
  6. ESOMEPRAZOLE. [Concomitant]
     Active Substance: ESOMEPRAZOLE MAGNESIUM
  7. AMIODARONE [Concomitant]
     Active Substance: AMIODARONE
  8. ALPRAZOLAM. [Concomitant]
     Active Substance: ALPRAZOLAM
  9. PREDNISONE. [Concomitant]
     Active Substance: PREDNISONE
  10. ACIDE FOLIQUE [Concomitant]
     Active Substance: FOLIC ACID
  11. CARBOPLATIN. [Suspect]
     Active Substance: CARBOPLATIN
  12. METOCLOPRAMIDE. [Concomitant]
     Active Substance: METOCLOPRAMIDE
  13. TRAMADOL. [Concomitant]
     Active Substance: TRAMADOL
  14. FUROSEMIDE. [Concomitant]
     Active Substance: FUROSEMIDE

REACTIONS (3)
  - Neutropenia [Recovered/Resolved]
  - Stomatitis [Recovered/Resolved]
  - Diarrhoea [Recovered/Resolved]

NARRATIVE: CASE EVENT DATE: 20190710
